FAERS Safety Report 8238889 (Version 3)
Quarter: 2012Q4

REPORT INFORMATION
  Report Type: Spontaneous
  Country: DE (occurrence: None)
  Receive Date: 20111104
  Receipt Date: 20121011
  Transmission Date: 20130627
  Serious: Yes (Death, Hospitalization)
  Sender: FDA-Public Use
  Company Number: EU-2011-10202

PATIENT
  Age: 68 Year
  Sex: Male
  Weight: 93 kg

DRUGS (7)
  1. SAMSCA [Suspect]
     Indication: INAPPROPRIATE ANTIDIURETIC HORMONE SECRETION
     Dosage: 7.5 MG MILLIGRAM(S), DAILY DOSE, ORAL ; 30 MG MILLIGRAM(S), ORAL ; 15 MG MILLIGRAM(S), ORAL
     Route: 048
     Dates: start: 20110609, end: 20110630
  2. SAMSCA [Suspect]
     Indication: INAPPROPRIATE ANTIDIURETIC HORMONE SECRETION
     Route: 048
     Dates: start: 20110630, end: 20110924
  3. MARCUMAR [Concomitant]
  4. NOVODIGAL (BETA-ACETYLDIGOXIN) [Concomitant]
  5. ATORVASTATIN [Concomitant]
  6. CARVEDILOL [Concomitant]
  7. OLMESARTAN MEDOXOMIL [Concomitant]

REACTIONS (4)
  - VENTRICULAR TACHYCARDIA [None]
  - DISEASE PROGRESSION [None]
  - BRONCHIAL CARCINOMA [None]
  - WRONG TECHNIQUE IN DRUG USAGE PROCESS [None]
